FAERS Safety Report 6121731-1 (Version None)
Quarter: 2009Q1

REPORT INFORMATION
  Report Type: 
  Country: None (occurrence: None)
  Receive Date: 20090317
  Receipt Date: 20090305
  Transmission Date: 20090719
  Serious: Yes (Other)
  Sender: FDA-Public Use
  Company Number: US-PFIZER INC-2008071914

PATIENT
  Sex: Male
  Weight: 95 kg

DRUGS (10)
  1. TIKOSYN [Suspect]
     Indication: ATRIAL FIBRILLATION
     Dosage: 500 UG, 2X/DAY
     Dates: start: 20070101
  2. TAMSULOSIN HYDROCHLORIDE [Concomitant]
  3. PRAVASTATIN [Concomitant]
  4. ASPIRIN [Concomitant]
  5. NORVASC [Concomitant]
  6. COZAAR [Concomitant]
  7. PREDNISONE TAB [Concomitant]
  8. PRILOSEC [Concomitant]
  9. FLOVENT [Concomitant]
     Indication: ASTHMA
  10. FISH OIL [Concomitant]

REACTIONS (9)
  - BRONCHITIS [None]
  - CONDITION AGGRAVATED [None]
  - DRUG HYPERSENSITIVITY [None]
  - DRUG INEFFECTIVE [None]
  - DYSPNOEA [None]
  - INFECTION [None]
  - LOWER RESPIRATORY TRACT INFECTION [None]
  - ORAL SURGERY [None]
  - PROSTATIC DISORDER [None]
